FAERS Safety Report 4317235-9 (Version None)
Quarter: 2004Q1

REPORT INFORMATION
  Report Type: 
  Country: None (occurrence: None)
  Receive Date: 20040312
  Receipt Date: 20011012
  Transmission Date: 20041129
  Serious: Yes (Hospitalization)
  Sender: FDA-Public Use
  Company Number: KII-2001-0007784

PATIENT
  Sex: Female

DRUGS (2)
  1. OXYCONTIN [Suspect]
     Indication: PAIN
     Dosage: 10 MG, Q12H, UNKNOWN
  2. VICODIN [Suspect]
     Indication: PAIN
     Dosage: 1 TABLET, PRN, UNKNOWN

REACTIONS (2)
  - DRUG DETOXIFICATION [None]
  - INADEQUATE ANALGESIA [None]
